FAERS Safety Report 7241043-2 (Version None)
Quarter: 2011Q1

REPORT INFORMATION
  Report Type: 
  Country: None (occurrence: None)
  Receive Date: 20110124
  Receipt Date: 20110111
  Transmission Date: 20110831
  Serious: Yes (Life-Threatening, Hospitalization, Other)
  Sender: FDA-Public Use
  Company Number: US-ACTELION-A-NJ2008-20746

PATIENT

DRUGS (24)
  1. CYANOCOBALAMIN [Concomitant]
  2. FERROUS SULFATE [Concomitant]
  3. TEMAZEPAM [Concomitant]
  4. OMEPRAZOLE [Concomitant]
  5. BOSENTAN TABLET 125 MG US [Suspect]
     Dosage: 62.5 MG, BID
     Route: 048
     Dates: start: 20080429, end: 20080630
  6. REVATIO [Concomitant]
  7. MUCINEX [Concomitant]
  8. LEVOXYL [Concomitant]
  9. ALENDRONATE SODIUM [Concomitant]
  10. FLOLAN [Concomitant]
  11. IMODIUM [Concomitant]
  12. CALCIUM CARBONATE [Concomitant]
  13. POTASSIUM CHLORIDE [Concomitant]
  14. BOSENTAN TABLET 125 MG US [Suspect]
     Indication: PULMONARY ARTERIAL HYPERTENSION
     Dosage: 125 MG, BID
     Route: 048
     Dates: start: 20080701
  15. FLUTICASONE PROPIONATE [Concomitant]
  16. CENTRUM SILVER [Concomitant]
  17. WARFARIN [Concomitant]
  18. ASPERCREME [Concomitant]
  19. TYLENOL-500 [Concomitant]
  20. ETHACRYNIC ACID [Concomitant]
  21. CALTRATE + D [Concomitant]
  22. AYR SALINE [Concomitant]
  23. REFRESH TEARS LUBRICANT [Concomitant]
  24. LORATADINE [Concomitant]

REACTIONS (8)
  - RHEUMATOID ARTHRITIS [None]
  - DYSPNOEA [None]
  - FATIGUE [None]
  - TRANSFUSION [None]
  - GASTROINTESTINAL HAEMORRHAGE [None]
  - ANAEMIA [None]
  - TACHYCARDIA [None]
  - OCULAR DISCOMFORT [None]
